FAERS Safety Report 12778899 (Version 1)
Quarter: 2016Q3

REPORT INFORMATION
  Report Type: Spontaneous
  Country: US (occurrence: US)
  Receive Date: 20160926
  Receipt Date: 20160926
  Transmission Date: 20161109
  Serious: No
  Sender: FDA-Public Use
  Company Number: US-JAZZ-2016-US-011010

PATIENT
  Sex: Male

DRUGS (35)
  1. CURCUMIN [Concomitant]
     Active Substance: CURCUMIN
  2. GLUTATHIONE [Concomitant]
     Active Substance: GLUTATHIONE
  3. PERCOCET [Concomitant]
     Active Substance: ACETAMINOPHEN\OXYCODONE HYDROCHLORIDE
  4. SORBITOL. [Concomitant]
     Active Substance: SORBITOL
  5. XYREM [Suspect]
     Active Substance: SODIUM OXYBATE
     Dosage: 5 G, SECOND DOSE
     Route: 048
     Dates: start: 200811, end: 201006
  6. XYREM [Suspect]
     Active Substance: SODIUM OXYBATE
     Dosage: DOSE ADJUSTMENTS
     Route: 048
     Dates: start: 201006, end: 201108
  7. AXIRON [Concomitant]
     Active Substance: TESTOSTERONE
  8. CLARITIN [Concomitant]
     Active Substance: LORATADINE
  9. IBUPROFEN. [Concomitant]
     Active Substance: IBUPROFEN
  10. XYREM [Suspect]
     Active Substance: SODIUM OXYBATE
     Dosage: DOSE ADJUSTMENTS
     Route: 048
     Dates: start: 200311, end: 200804
  11. XYREM [Suspect]
     Active Substance: SODIUM OXYBATE
     Dosage: 9 G, FIRST DOSE
     Route: 048
     Dates: start: 200811, end: 201006
  12. CORTEF [Concomitant]
     Active Substance: HYDROCORTISONE
  13. PRILOSEC [Concomitant]
     Active Substance: OMEPRAZOLE MAGNESIUM
  14. XYREM [Suspect]
     Active Substance: SODIUM OXYBATE
     Indication: FIBROMYALGIA
     Dosage: 2.25 G, BID
     Route: 048
     Dates: start: 200310, end: 200311
  15. XYREM [Suspect]
     Active Substance: SODIUM OXYBATE
     Dosage: 5 G, SECOND DOSE
     Route: 048
     Dates: start: 200804, end: 2008
  16. XYREM [Suspect]
     Active Substance: SODIUM OXYBATE
     Dosage: 4.5 G, BID
     Route: 048
     Dates: start: 201108
  17. DIFLUCAN [Concomitant]
     Active Substance: FLUCONAZOLE
  18. VALTREX [Concomitant]
     Active Substance: VALACYCLOVIR HYDROCHLORIDE
  19. VITAMIN C [Concomitant]
     Active Substance: ASCORBIC ACID
  20. ZESTRIL [Concomitant]
     Active Substance: LISINOPRIL
  21. CARDIZEM CD [Concomitant]
     Active Substance: DILTIAZEM HYDROCHLORIDE
  22. FLOMAX [Concomitant]
     Active Substance: TAMSULOSIN HYDROCHLORIDE
  23. ALPHA LIPOIC ACID [Concomitant]
     Active Substance: .ALPHA.-LIPOIC ACID
  24. DENAVIR [Concomitant]
     Active Substance: PENCICLOVIR
  25. EPIPEN [Concomitant]
     Active Substance: EPINEPHRINE
  26. MARINOL [Concomitant]
     Active Substance: DRONABINOL
  27. CLINDAMYCIN PHOSPHATE. [Concomitant]
     Active Substance: CLINDAMYCIN PHOSPHATE
  28. CLONIDINE HCL [Concomitant]
     Active Substance: CLONIDINE HYDROCHLORIDE
  29. FLONASE [Concomitant]
     Active Substance: FLUTICASONE PROPIONATE
  30. METHADONE HCL [Concomitant]
     Active Substance: METHADONE HYDROCHLORIDE
  31. XYREM [Suspect]
     Active Substance: SODIUM OXYBATE
     Dosage: 9 G, FIRST DOSE
     Route: 048
     Dates: start: 200804, end: 2008
  32. PROBIOTIC [Concomitant]
     Active Substance: PROBIOTICS NOS
  33. PROVENTIL HFA [Concomitant]
     Active Substance: ALBUTEROL SULFATE
  34. VITAMIN B12 [Concomitant]
     Active Substance: CYANOCOBALAMIN
  35. CLOTRIMAZOLE. [Concomitant]
     Active Substance: CLOTRIMAZOLE

REACTIONS (2)
  - Unevaluable event [Not Recovered/Not Resolved]
  - Tremor [Not Recovered/Not Resolved]
